FAERS Safety Report 6465502-5 (Version None)
Quarter: 2009Q4

REPORT INFORMATION
  Report Type: 
  Country: None (occurrence: None)
  Receive Date: 20091201
  Receipt Date: 20090515
  Transmission Date: 20100525
  Serious: No
  Sender: FDA-Public Use
  Company Number: US-AMGEN-KDL312680

PATIENT
  Sex: Female

DRUGS (8)
  1. ENBREL [Suspect]
     Indication: RHEUMATOID ARTHRITIS
     Route: 058
     Dates: start: 20020101
  2. LEFLUNOMIDE [Concomitant]
     Route: 048
     Dates: start: 20070101
  3. METHOTREXATE [Concomitant]
     Dates: end: 20070401
  4. UNSPECIFIED ANTIHYPERTENSIVE AGENT [Concomitant]
  5. CELEBREX [Concomitant]
  6. PREDNISONE TAB [Concomitant]
     Dates: start: 20080501
  7. TRAMADOL HCL [Concomitant]
  8. FLEXERIL [Concomitant]

REACTIONS (13)
  - ALLERGY TO VACCINE [None]
  - FATIGUE [None]
  - HEADACHE [None]
  - HEPATIC ENZYME INCREASED [None]
  - HYPERTENSION [None]
  - INJECTION SITE IRRITATION [None]
  - INJECTION SITE PAIN [None]
  - INJECTION SITE REACTION [None]
  - MALAISE [None]
  - NAUSEA [None]
  - PRURITUS [None]
  - SLEEP DISORDER [None]
  - THROAT TIGHTNESS [None]
